FAERS Safety Report 15499046 (Version 5)
Quarter: 2019Q1

REPORT INFORMATION
  Report Type: Report from Study
  Country: CA (occurrence: CA)
  Receive Date: 20181015
  Receipt Date: 20190130
  Transmission Date: 20190417
  Serious: Yes (Hospitalization)
  Sender: FDA-Public Use
  Company Number: CA-JNJFOC-20180906408

PATIENT
  Age: 74 Year
  Sex: Male
  Weight: 66.6 kg

DRUGS (3)
  1. REMICADE [Suspect]
     Active Substance: INFLIXIMAB
     Indication: COLITIS ULCERATIVE
     Route: 042
  2. REMICADE [Suspect]
     Active Substance: INFLIXIMAB
     Indication: COLITIS ULCERATIVE
     Route: 042
     Dates: start: 20160628, end: 2018
  3. REMICADE [Suspect]
     Active Substance: INFLIXIMAB
     Indication: COLITIS ULCERATIVE
     Dosage: STRENGTH = 100 MG
     Route: 042
     Dates: start: 201501

REACTIONS (6)
  - Post procedural complication [Unknown]
  - Post procedural infection [Unknown]
  - Jaundice [Unknown]
  - Weight decreased [Unknown]
  - Liver disorder [Unknown]
  - Prostate cancer [Unknown]

NARRATIVE: CASE EVENT DATE: 2016
